FAERS Safety Report 9428696 (Version 1)
Quarter: 2013Q3

REPORT INFORMATION
  Report Type: Report from Study
  Country: US (occurrence: US)
  Receive Date: 20130730
  Receipt Date: 20130730
  Transmission Date: 20140515
  Serious: No
  Sender: FDA-Public Use
  Company Number: US-ABBOTT-12P-163-1024980-00

PATIENT
  Age: 64 Year
  Sex: Female
  Weight: 102.6 kg

DRUGS (7)
  1. PLAQUENIL [Concomitant]
     Indication: PRODUCT USED FOR UNKNOWN INDICATION
     Route: 048
  2. GABAPENTIN [Concomitant]
     Indication: PRODUCT USED FOR UNKNOWN INDICATION
     Route: 048
  3. LISINOPRIL [Concomitant]
     Indication: PRODUCT USED FOR UNKNOWN INDICATION
     Route: 048
  4. LEVOTHYROXINE [Concomitant]
     Indication: PRODUCT USED FOR UNKNOWN INDICATION
     Route: 048
  5. ANTIACID [Concomitant]
     Indication: PRODUCT USED FOR UNKNOWN INDICATION
     Route: 048
  6. WELCHOL [Concomitant]
     Indication: BLOOD CHOLESTEROL INCREASED
     Route: 048
  7. NIASPAN (COATED) [Suspect]
     Indication: BLOOD CHOLESTEROL INCREASED
     Dosage: 500 MILLIGRAM AT BEDTIME
     Route: 048
     Dates: start: 20121219

REACTIONS (5)
  - Flushing [Not Recovered/Not Resolved]
  - Hypersensitivity [Unknown]
  - Generalised erythema [Unknown]
  - Pruritus generalised [Unknown]
  - Nausea [Unknown]
